FAERS Safety Report 10246334 (Version 1)
Quarter: 2014Q2

REPORT INFORMATION
  Report Type: Spontaneous
  Country: EC (occurrence: EC)
  Receive Date: 20140619
  Receipt Date: 20140619
  Transmission Date: 20141212
  Serious: Yes (Other)
  Sender: FDA-Public Use
  Company Number: EC-009507513-1406ECU008535

PATIENT
  Age: 30 Year
  Sex: Female

DRUGS (1)
  1. IMPLANON NXT [Suspect]
     Indication: CHEMICAL CONTRACEPTION
     Dosage: UNK
     Route: 059
     Dates: end: 2014

REACTIONS (5)
  - Blindness [Recovered/Resolved]
  - Fall [Recovered/Resolved]
  - Device dislocation [Unknown]
  - Discomfort [Unknown]
  - Dizziness [Recovered/Resolved]
